FAERS Safety Report 23377268 (Version 1)
Quarter: 2024Q1

REPORT INFORMATION
  Report Type: Spontaneous
  Country: None (occurrence: QA)
  Receive Date: 20240108
  Receipt Date: 20240108
  Transmission Date: 20240410
  Serious: Yes (Hospitalization, Other)
  Sender: FDA-Public Use
  Company Number: QA-Oxford Pharmaceuticals, LLC-2150562

PATIENT
  Age: 29 Year
  Sex: Male

DRUGS (1)
  1. TIZANIDINE HYDROCHLORIDE [Suspect]
     Active Substance: TIZANIDINE HYDROCHLORIDE
     Indication: Insomnia
     Route: 065

REACTIONS (15)
  - Drug withdrawal syndrome [Unknown]
  - Vomiting [Unknown]
  - Hiccups [Unknown]
  - Pyrexia [Unknown]
  - Supraventricular tachycardia [Unknown]
  - Renal injury [Unknown]
  - Agitation [Unknown]
  - Flushing [Unknown]
  - Hyperhidrosis [Unknown]
  - Dehydration [Unknown]
  - Hypertension [Unknown]
  - Tachycardia [Unknown]
  - Liver injury [Unknown]
  - Off label use [Unknown]
  - Overdose [Unknown]
